FAERS Safety Report 4823286-8 (Version None)
Quarter: 2005Q4

REPORT INFORMATION
  Report Type: 
  Country: None (occurrence: None)
  Receive Date: 20051107
  Receipt Date: 20051017
  Transmission Date: 20060501
  Serious: Yes (Hospitalization)
  Sender: FDA-Public Use
  Company Number: EWC051046915

PATIENT
  Age: 65 Year
  Sex: Male
  Weight: 70 kg

DRUGS (6)
  1. OLANZAPINE [Suspect]
     Indication: BIPOLAR DISORDER
     Dates: start: 20050201, end: 20050908
  2. LAMOTRIGINE [Concomitant]
  3. SERTRALINE HCL [Concomitant]
  4. ENALAPRIL [Concomitant]
  5. TICLOPIDINE HCL [Concomitant]
  6. DOXAZOSIN [Concomitant]

REACTIONS (5)
  - BLOOD CREATINE PHOSPHOKINASE INCREASED [None]
  - BLOOD CREATINE PHOSPHOKINASE MB INCREASED [None]
  - MYOCARDITIS [None]
  - MYOPATHY [None]
  - RENAL FAILURE ACUTE [None]
